FAERS Safety Report 12450616 (Version 1)
Quarter: 2016Q2

REPORT INFORMATION
  Report Type: Spontaneous
  Country: PT (occurrence: PT)
  Receive Date: 20160609
  Receipt Date: 20160609
  Transmission Date: 20160815
  Serious: Yes (Life-Threatening)
  Sender: FDA-Public Use
  Company Number: PT-ACTAVIS-2016-11819

PATIENT
  Age: 47 Year
  Sex: Female
  Weight: 60 kg

DRUGS (6)
  1. PREDNISOLONA                       /00016201/ [Concomitant]
     Indication: ALLERGY PROPHYLAXIS
     Dosage: 80 MG, 1/ THREE WEEKS (PR?-MEDICA??O. PREMEDICATION.)
     Route: 048
     Dates: start: 20160421
  2. EPIRRUBICINA [Concomitant]
     Active Substance: EPIRUBICIN
     Indication: BREAST CANCER
     Dosage: 150 MG, UNKNOWN (PARTE DO PROTOCOLO ANTERIOR. PART OF THE PREVIOUS PROTOCOL.)
     Route: 042
     Dates: start: 20160122
  3. DOCETAXEL AUROVITAS [Suspect]
     Active Substance: DOCETAXEL
     Indication: BREAST CANCER
     Dosage: 171 MG, 1/ THREE WEEKS
     Route: 042
     Dates: start: 20160513, end: 20160513
  4. CLEMASTINA [Concomitant]
     Indication: ALLERGY PROPHYLAXIS
     Dosage: 2 MG, 1/ THREE WEEKS (PR?-MEDICA??O. PREMEDICATION.)
     Route: 042
     Dates: start: 20160513
  5. TRASTUZUMAB [Concomitant]
     Active Substance: TRASTUZUMAB
     Indication: BREAST CANCER
     Dosage: 600 MG, 1/ THREE WEEKS (PART OF THE PROTOCOL WITH THE SUSPECTED DRUG.)
     Route: 058
     Dates: start: 20160422
  6. CICLOFOSFAMIDA [Concomitant]
     Active Substance: CYCLOPHOSPHAMIDE
     Indication: BREAST CANCER
     Dosage: 1026 MG, UNKNOWN (PARTE DO PROTOCOLO ANTERIOR. PART OF THE PREVIOUS PROTOCOL.)
     Route: 042
     Dates: start: 20160122

REACTIONS (3)
  - Respiratory distress [Recovered/Resolved]
  - Flushing [Recovered/Resolved]
  - Erythema [Recovered/Resolved]

NARRATIVE: CASE EVENT DATE: 20160513
